FAERS Safety Report 6630970-2 (Version None)
Quarter: 2010Q1

REPORT INFORMATION
  Report Type: 
  Country: None (occurrence: None)
  Receive Date: 20100311
  Receipt Date: 20100224
  Transmission Date: 20100710
  Serious: No
  Sender: FDA-Public Use
  Company Number: US-BIOGENIDEC-2010BI006538

PATIENT
  Age: 50 Year
  Sex: Female

DRUGS (2)
  1. TYSABRI [Suspect]
     Indication: MULTIPLE SCLEROSIS
     Route: 042
     Dates: start: 20080201, end: 20080328
  2. TYSABRI [Suspect]
     Route: 042
     Dates: start: 20090217

REACTIONS (2)
  - BALANCE DISORDER [None]
  - FATIGUE [None]
